FAERS Safety Report 12845140 (Version 1)
Quarter: 2016Q4

REPORT INFORMATION
  Report Type: Report from Study
  Country: None (occurrence: ZA)
  Receive Date: 20161013
  Receipt Date: 20161013
  Transmission Date: 20170207
  Serious: Yes (Hospitalization)
  Sender: FDA-Public Use
  Company Number: ZA-ABBVIE-16K-143-1739996-00

PATIENT
  Sex: Female

DRUGS (2)
  1. METHOTREXATE. [Suspect]
     Active Substance: METHOTREXATE
     Indication: PRODUCT USED FOR UNKNOWN INDICATION
     Route: 065
  2. HUMIRA [Suspect]
     Active Substance: ADALIMUMAB
     Indication: RHEUMATOID ARTHRITIS
     Route: 058
     Dates: end: 201608

REACTIONS (9)
  - Cystocele [Unknown]
  - Rectal prolapse [Unknown]
  - Gastrointestinal melanosis [Unknown]
  - Rectocele [Unknown]
  - Colpocele [Unknown]
  - Constipation [Unknown]
  - Connective tissue disorder [Unknown]
  - Pelvic prolapse [Unknown]
  - Haemorrhoids [Unknown]
